FAERS Safety Report 23331339 (Version 1)
Quarter: 2023Q4

REPORT INFORMATION
  Report Type: Spontaneous
  Country: US (occurrence: None)
  Receive Date: 20231221
  Receipt Date: 20231221
  Transmission Date: 20240110
  Serious: Yes (Hospitalization)
  Sender: FDA-Public Use
  Company Number: None

PATIENT
  Age: 84 Year
  Sex: Female
  Weight: 72 kg

DRUGS (2)
  1. SYFOVRE [Suspect]
     Active Substance: PEGCETACOPLAN
     Indication: Age-related macular degeneration
     Dates: start: 20231108, end: 20231111
  2. SYFOVRE [Concomitant]
     Active Substance: PEGCETACOPLAN
     Dates: start: 20231108, end: 20231111

REACTIONS (4)
  - Procedural pain [None]
  - Keratorhexis [None]
  - Blindness [None]
  - Herpes zoster [None]

NARRATIVE: CASE EVENT DATE: 20231108
